FAERS Safety Report 11331270 (Version 1)
Quarter: 2015Q3

REPORT INFORMATION
  Report Type: Report from Study
  Country: US (occurrence: US)
  Receive Date: 20150803
  Receipt Date: 20150803
  Transmission Date: 20151125
  Serious: Yes (Other)
  Sender: FDA-Public Use
  Company Number: US-TEVA-581980USA

PATIENT
  Sex: Female
  Weight: 63.56 kg

DRUGS (2)
  1. RIBAVIRIN. [Suspect]
     Active Substance: RIBAVIRIN
     Indication: HEPATITIS C
     Route: 065
  2. REMODULIN [Suspect]
     Active Substance: TREPROSTINIL
     Indication: PULMONARY HYPERTENSION
     Route: 041
     Dates: start: 20140827

REACTIONS (4)
  - Deafness [Unknown]
  - Vitreous floaters [Unknown]
  - Haematoma [Unknown]
  - Corneal bleeding [Unknown]

NARRATIVE: CASE EVENT DATE: 2015
